FAERS Safety Report 20247547 (Version 1)
Quarter: 2021Q4

REPORT INFORMATION
  Report Type: Spontaneous
  Country: US (occurrence: US)
  Receive Date: 20211229
  Receipt Date: 20211229
  Transmission Date: 20220303
  Serious: No
  Sender: FDA-Public Use
  Company Number: US-SA-SAC20211225000476

PATIENT
  Age: 44 Year
  Sex: Female

DRUGS (12)
  1. DUPIXENT [Suspect]
     Active Substance: DUPILUMAB
     Indication: Dermatitis atopic
     Dosage: 300 MG, QOW
     Route: 058
     Dates: start: 20190608
  2. CALCIUM CITRATE\VITAMIN D [Concomitant]
     Active Substance: CALCIUM CITRATE\VITAMIN D
  3. CALCIUM CITRATE\VITAMIN D [Concomitant]
     Active Substance: CALCIUM CITRATE\VITAMIN D
  4. CELECOXIB [Concomitant]
     Active Substance: CELECOXIB
     Dosage: 20MG
  5. GABAPENTIN [Concomitant]
     Active Substance: GABAPENTIN
     Dosage: 600MG
  6. GABAPENTIN [Concomitant]
     Active Substance: GABAPENTIN
  7. MUCINEX D [Concomitant]
     Active Substance: GUAIFENESIN\PSEUDOEPHEDRINE HYDROCHLORIDE
  8. MUCINEX D [Concomitant]
     Active Substance: GUAIFENESIN\PSEUDOEPHEDRINE HYDROCHLORIDE
     Dosage: STRENGTH: 120-1200
  9. MYRBETRIQ [Concomitant]
     Active Substance: MIRABEGRON
     Dosage: 25MG
  10. MYRBETRIQ [Concomitant]
     Active Substance: MIRABEGRON
  11. PROAIR HFA [Concomitant]
     Active Substance: ALBUTEROL SULFATE
     Indication: Asthma
  12. CELEXA [Concomitant]
     Active Substance: CITALOPRAM HYDROBROMIDE

REACTIONS (1)
  - Rash [Unknown]
